FAERS Safety Report 4848364-9 (Version None)
Quarter: 2005Q4

REPORT INFORMATION
  Report Type: 
  Country: None (occurrence: None)
  Receive Date: 20051115
  Receipt Date: 20050809
  Transmission Date: 20060501
  Serious: Yes (Other)
  Sender: FDA-Public Use
  Company Number: 413823

PATIENT
  Age: 53 Year
  Sex: Male

DRUGS (5)
  1. PEGASYS [Suspect]
     Indication: HEPATITIS C VIRUS
     Dosage: 90 MCG 1 PER WEEK OTHER
     Dates: start: 20040422
  2. COPEGUS [Suspect]
     Indication: HEPATITIS C VIRUS
     Dosage: 5 DOSE FORM DAILY ORAL
     Route: 048
     Dates: start: 20050422
  3. MORPHINE [Concomitant]
  4. SOMA [Concomitant]
  5. LEXAPRO [Concomitant]

REACTIONS (5)
  - BRONCHITIS [None]
  - PLATELET COUNT DECREASED [None]
  - PNEUMONIA [None]
  - PYREXIA [None]
  - WHITE BLOOD CELL COUNT DECREASED [None]
